FAERS Safety Report 8818090 (Version 2)
Quarter: 2018Q4

REPORT INFORMATION
  Report Type: Spontaneous
  Country: FR (occurrence: FR)
  Receive Date: 20121001
  Receipt Date: 20181109
  Transmission Date: 20190205
  Serious: Yes (Hospitalization, Other)
  Sender: FDA-Public Use
  Company Number: FR-009507513-1209FRA011733

PATIENT
  Age: 21 Day
  Sex: Female
  Weight: 3.2 kg

DRUGS (1)
  1. PROGLICEM [Suspect]
     Active Substance: DIAZOXIDE
     Indication: HYPERINSULINISM
     Dosage: 10 MG/KG, QD
     Route: 048
     Dates: start: 20120726, end: 20120802

REACTIONS (1)
  - Pulmonary arterial hypertension [Recovering/Resolving]

NARRATIVE: CASE EVENT DATE: 20120802
